FAERS Safety Report 4937480-9 (Version None)
Quarter: 2006Q1

REPORT INFORMATION
  Report Type: 
  Country: None (occurrence: None)
  Receive Date: 20060309
  Receipt Date: 20060222
  Transmission Date: 20060701
  Serious: Yes (Hospitalization)
  Sender: FDA-Public Use
  Company Number: PHEH2006US02474

PATIENT
  Age: 67 Year
  Sex: Female

DRUGS (4)
  1. ZELNORM [Suspect]
     Indication: CONSTIPATION
     Dosage: 6 MG, BID
     Route: 048
     Dates: start: 20050812, end: 20060220
  2. PREMARIN [Concomitant]
     Dosage: 0.625 MG, UNK
  3. PREVACID [Concomitant]
     Dosage: 30 MG, QD
  4. TARKA [Concomitant]
     Dosage: 4/240, QD

REACTIONS (12)
  - ABDOMINAL PAIN [None]
  - ABDOMINAL TENDERNESS [None]
  - ANAEMIA [None]
  - COLITIS ISCHAEMIC [None]
  - DIARRHOEA [None]
  - HAEMATOCHEZIA [None]
  - HAEMORRHAGE [None]
  - INFLAMMATION [None]
  - OEDEMA MUCOSAL [None]
  - POLYP COLORECTAL [None]
  - POLYPECTOMY [None]
  - RECTAL HAEMORRHAGE [None]
